FAERS Safety Report 15832754 (Version 12)
Quarter: 2020Q2

REPORT INFORMATION
  Report Type: Spontaneous
  Country: US (occurrence: US)
  Receive Date: 20190116
  Receipt Date: 20200528
  Transmission Date: 20200713
  Serious: No
  Sender: FDA-Public Use
  Company Number: US-ACTELION-A-NJ2018-174827

PATIENT
  Age: 68 Year
  Sex: Female
  Weight: 68.93 kg

DRUGS (14)
  1. PROCARDIA [Concomitant]
     Active Substance: NIFEDIPINE
     Dosage: 30 MG, QD
  2. UPTRAVI [Suspect]
     Active Substance: SELEXIPAG
     Indication: PULMONARY ARTERIAL HYPERTENSION
     Dosage: 600 MCG, BID
     Route: 048
  3. LEVOTHYROXINE. [Concomitant]
     Active Substance: LEVOTHYROXINE
     Dosage: 75 MCG, QD
  4. PRAVACHOL [Concomitant]
     Active Substance: PRAVASTATIN SODIUM
     Dosage: 40 MG, QD
  5. PLAQUENIL [Concomitant]
     Active Substance: HYDROXYCHLOROQUINE SULFATE
     Dosage: 400 MG, QD
  6. ASPIRIN. [Concomitant]
     Active Substance: ASPIRIN
     Dosage: 81 MG, QD
  7. MULTIVITAMIN [Concomitant]
     Active Substance: VITAMINS
     Dosage: UNK, QD
  8. UPTRAVI [Suspect]
     Active Substance: SELEXIPAG
     Dosage: 200 MCG, BID
     Route: 048
  9. COUMADIN [Concomitant]
     Active Substance: WARFARIN SODIUM
     Dosage: 2.5 MG, QD
  10. REQUIP [Concomitant]
     Active Substance: ROPINIROLE HYDROCHLORIDE
     Dosage: .5 MG, QPM
  11. OPSUMIT [Suspect]
     Active Substance: MACITENTAN
     Indication: PULMONARY ARTERIAL HYPERTENSION
     Dosage: 10 MG, QD
     Route: 048
     Dates: start: 20180518
  12. MACRODANTIN [Concomitant]
     Active Substance: NITROFURANTOIN
     Dosage: 50 MG, QD
  13. SILDENAFIL CITRATE. [Concomitant]
     Active Substance: SILDENAFIL CITRATE
     Dosage: 20 MG, TID
     Dates: start: 2017
  14. PROTONIX [Concomitant]
     Active Substance: PANTOPRAZOLE SODIUM
     Dosage: 40 MG, QD

REACTIONS (19)
  - Nasal congestion [Recovering/Resolving]
  - Hypoxia [Unknown]
  - Oedema peripheral [Not Recovered/Not Resolved]
  - Dizziness [Unknown]
  - Pain in extremity [Unknown]
  - Rhinorrhoea [Recovering/Resolving]
  - Dyspnoea [Recovered/Resolved with Sequelae]
  - Hypotension [Recovered/Resolved]
  - Pain in jaw [Not Recovered/Not Resolved]
  - Swelling [Unknown]
  - Arthralgia [Unknown]
  - Constipation [Unknown]
  - Chest pain [Unknown]
  - Dermatitis contact [Unknown]
  - Condition aggravated [Recovering/Resolving]
  - Skin reaction [Unknown]
  - Arthropod bite [Unknown]
  - Restless legs syndrome [Unknown]
  - Limb discomfort [Unknown]

NARRATIVE: CASE EVENT DATE: 2018
